FAERS Safety Report 12285276 (Version 1)
Quarter: 2016Q2

REPORT INFORMATION
  Report Type: Spontaneous
  Country: JP (occurrence: JP)
  Receive Date: 20160420
  Receipt Date: 20160420
  Transmission Date: 20160815
  Serious: Yes (Other)
  Sender: FDA-Public Use
  Company Number: JP-ABBVIE-16K-087-1607702-00

PATIENT
  Sex: Female
  Weight: 90 kg

DRUGS (4)
  1. CALCIPOTRIOL HYDRATE/BETAMETHASONE DIPROPIONATE [Concomitant]
     Indication: PSORIASIS
     Route: 061
  2. HUMIRA [Suspect]
     Active Substance: ADALIMUMAB
     Indication: PSORIASIS
     Route: 058
  3. HUMIRA [Suspect]
     Active Substance: ADALIMUMAB
     Route: 058
     Dates: start: 2016
  4. MAXACALCITOL [Concomitant]
     Active Substance: MAXACALCITOL
     Indication: PSORIASIS
     Route: 061

REACTIONS (4)
  - Drug ineffective [Recovering/Resolving]
  - Psoriasis [Recovering/Resolving]
  - Paradoxical drug reaction [Unknown]
  - Generalised oedema [Recovering/Resolving]

NARRATIVE: CASE EVENT DATE: 2016
